FAERS Safety Report 8012815-1 (Version None)
Quarter: 2011Q4

REPORT INFORMATION
  Report Type: 
  Country: None (occurrence: None)
  Receive Date: 20111229
  Receipt Date: 20111222
  Transmission Date: 20120403
  Serious: Yes (Other)
  Sender: FDA-Public Use
  Company Number: DE-BRISTOL-MYERS SQUIBB COMPANY-16002321

PATIENT
  Age: 78 Year
  Sex: Female
  Weight: 64 kg

DRUGS (1)
  1. ONGLYZA [Suspect]
     Indication: DIABETES MELLITUS
     Route: 048
     Dates: start: 20110620, end: 20110624

REACTIONS (5)
  - DIARRHOEA [None]
  - BLOOD CREATININE INCREASED [None]
  - PANCREATIC ENZYMES INCREASED [None]
  - LIVER FUNCTION TEST ABNORMAL [None]
  - ABDOMINAL DISCOMFORT [None]
